FAERS Safety Report 21347880 (Version 13)
Quarter: 2022Q4

REPORT INFORMATION
  Report Type: Other
  Country: CA (occurrence: None)
  Receive Date: 20220919
  Receipt Date: 20221229
  Transmission Date: 20230112
  Serious: No
  Sender: FDA-Public Use
  Company Number: CA-ROCHE-3176683

PATIENT
  Age: 71 Year
  Sex: Female

DRUGS (3)
  1. OCREVUS [Suspect]
     Active Substance: OCRELIZUMAB
     Indication: Relapsing-remitting multiple sclerosis
     Dosage: MORE DOSAGE INFORMATION IS 300 MG AT DAY 0 AND 14, THEN 600 MG EVERY 6 MONTH
     Route: 042
     Dates: start: 20210226
  2. QUININE [Suspect]
     Active Substance: QUININE
     Indication: Product used for unknown indication
     Route: 065
  3. TYLENOL [Concomitant]
     Active Substance: ACETAMINOPHEN

REACTIONS (11)
  - Post-acute COVID-19 syndrome [Unknown]
  - Mobility decreased [Not Recovered/Not Resolved]
  - Restless legs syndrome [Unknown]
  - Drug hypersensitivity [Unknown]
  - Allergy to animal [Unknown]
  - Food allergy [Unknown]
  - Nasopharyngitis [Not Recovered/Not Resolved]
  - Ear pain [Unknown]
  - Productive cough [Recovered/Resolved]
  - Sneezing [Unknown]
  - Rhinorrhoea [Unknown]

NARRATIVE: CASE EVENT DATE: 20220807
